FAERS Safety Report 13521545 (Version 1)
Quarter: 2017Q2

REPORT INFORMATION
  Report Type: Spontaneous
  Country: US (occurrence: US)
  Receive Date: 20170505
  Receipt Date: 20170505
  Transmission Date: 20170830
  Serious: No
  Sender: FDA-Public Use
  Company Number: None

PATIENT
  Age: 7 Year
  Sex: Female
  Weight: 27.9 kg

DRUGS (2)
  1. MONTELUKAST SODIUM CHEWABLE TABL [Suspect]
     Active Substance: MONTELUKAST SODIUM
     Indication: ASTHMA
     Dosage: ?          QUANTITY:30 TABLET(S);?
     Route: 048
     Dates: start: 20170328, end: 20170429
  2. MONTELUKAST SODIUM CHEWABLE TABL [Suspect]
     Active Substance: MONTELUKAST SODIUM
     Indication: MULTIPLE ALLERGIES
     Dosage: ?          QUANTITY:30 TABLET(S);?
     Route: 048
     Dates: start: 20170328, end: 20170429

REACTIONS (4)
  - Product colour issue [None]
  - Product substitution issue [None]
  - Depression [None]
  - Thinking abnormal [None]

NARRATIVE: CASE EVENT DATE: 20170428
